FAERS Safety Report 10007100 (Version 1)
Quarter: 2014Q1

REPORT INFORMATION
  Report Type: Spontaneous
  Country: NO (occurrence: NO)
  Receive Date: 20140313
  Receipt Date: 20140313
  Transmission Date: 20141002
  Serious: Yes (Hospitalization)
  Sender: FDA-Public Use
  Company Number: NO-JNJFOC-20140305384

PATIENT
  Age: 40 Year
  Sex: Male

DRUGS (4)
  1. REMICADE [Suspect]
     Indication: RHEUMATOID ARTHRITIS
     Route: 042
     Dates: start: 2006
  2. IBUX [Concomitant]
     Indication: PAIN
     Route: 048
  3. KETOPROFEN [Concomitant]
     Indication: PAIN
     Route: 048
  4. INSULIN [Concomitant]
     Indication: DIABETES MELLITUS
     Route: 065

REACTIONS (1)
  - Dislocation of vertebra [Recovered/Resolved]
